FAERS Safety Report 9017571 (Version 1)
Quarter: 2013Q1

REPORT INFORMATION
  Report Type: Spontaneous
  Country: US (occurrence: US)
  Receive Date: 20130117
  Receipt Date: 20130117
  Transmission Date: 20140127
  Serious: Yes (Other)
  Sender: FDA-Public Use
  Company Number: CHPA2013US000730

PATIENT
  Age: 86 Year
  Sex: Female

DRUGS (1)
  1. BUCKLEY^S CHEST CONGESTION [Suspect]
     Indication: COUGH
     Dosage: UNK, UNK
     Route: 065
     Dates: end: 20130106

REACTIONS (3)
  - Chronic obstructive pulmonary disease [Unknown]
  - Hypertension [Unknown]
  - Expired drug administered [Unknown]
